FAERS Safety Report 6339866-7 (Version None)
Quarter: 2009Q3

REPORT INFORMATION
  Report Type: 
  Country: None (occurrence: None)
  Receive Date: 20090903
  Receipt Date: 20090821
  Transmission Date: 20100115
  Serious: Yes (Other)
  Sender: FDA-Public Use
  Company Number: US-PFIZER INC-2009243576

PATIENT
  Age: 64 Year
  Sex: Female
  Weight: 146.51 kg

DRUGS (1)
  1. CHANTIX [Suspect]
     Indication: TOBACCO ABUSE
     Dosage: UNK
     Route: 048
     Dates: start: 20081015, end: 20081101

REACTIONS (5)
  - BLOOD FOLATE DECREASED [None]
  - DELIRIUM [None]
  - DEPRESSION [None]
  - HALLUCINATION [None]
  - MENTAL DISORDER [None]
